FAERS Safety Report 21164438 (Version 1)
Quarter: 2022Q3

REPORT INFORMATION
  Report Type: Spontaneous
  Country: None (occurrence: US)
  Receive Date: 20220803
  Receipt Date: 20220803
  Transmission Date: 20221026
  Serious: Yes (Hospitalization)
  Sender: FDA-Public Use
  Company Number: US-Jiangsu Hengrui Medicine Co., Ltd.-2131476

PATIENT
  Sex: Female

DRUGS (1)
  1. CYCLOPHOSPHAMIDE [Suspect]
     Active Substance: CYCLOPHOSPHAMIDE
     Indication: Systemic lupus erythematosus

REACTIONS (14)
  - Visual impairment [Unknown]
  - Neuropathy peripheral [Unknown]
  - Pain [Unknown]
  - Musculoskeletal discomfort [Unknown]
  - Muscle discomfort [Unknown]
  - Limb discomfort [Unknown]
  - Alopecia [Unknown]
  - Pericarditis [Unknown]
  - Colitis [Unknown]
  - Enteritis infectious [Unknown]
  - Pleural effusion [Unknown]
  - Disease progression [Unknown]
  - Product use in unapproved indication [Unknown]
  - Drug ineffective for unapproved indication [Unknown]
